FAERS Safety Report 7049049-3 (Version None)
Quarter: 2010Q4

REPORT INFORMATION
  Report Type: 
  Country: None (occurrence: None)
  Receive Date: 20101007
  Receipt Date: 20100929
  Transmission Date: 20110411
  Serious: Yes (Hospitalization)
  Sender: FDA-Public Use
  Company Number: TRP_07297_2010

PATIENT
  Sex: Male

DRUGS (4)
  1. RIBASPHERE [Suspect]
     Indication: HEPATITIS C
     Dosage: (6 DF QD ORAL) ; (3 DF QD ORAL)
     Route: 048
     Dates: start: 20100621, end: 20100901
  2. RIBASPHERE [Suspect]
     Indication: HEPATITIS C
     Dosage: (6 DF QD ORAL) ; (3 DF QD ORAL)
     Route: 048
     Dates: start: 20100901
  3. PEG-INTRON [Suspect]
     Indication: HEPATITIS C
     Dosage: (SUBCUTANEOUS)
     Route: 058
     Dates: start: 20100621
  4. UNSPECIFIED MEDICATIONS FOR ACID REFLUX [Concomitant]

REACTIONS (11)
  - BLOOD COUNT ABNORMAL [None]
  - FATIGUE [None]
  - FEELING ABNORMAL [None]
  - INJECTION SITE RASH [None]
  - JAUNDICE [None]
  - LOSS OF CONSCIOUSNESS [None]
  - NERVOUSNESS [None]
  - NEUTROPENIA [None]
  - PAIN [None]
  - RASH ERYTHEMATOUS [None]
  - VOMITING [None]
